FAERS Safety Report 16315199 (Version 1)
Quarter: 2019Q2

REPORT INFORMATION
  Report Type: Report from Study
  Country: US (occurrence: US)
  Receive Date: 20190515
  Receipt Date: 20190515
  Transmission Date: 20190711
  Serious: Yes (Death, Other)
  Sender: FDA-Public Use
  Company Number: US-GILEAD-2019-0407049

PATIENT
  Age: 51 Year
  Sex: Male

DRUGS (14)
  1. SOFOSBUVIR [Suspect]
     Active Substance: SOFOSBUVIR
     Indication: HEPATITIS C
     Dosage: 400 MG, QD
     Route: 048
     Dates: start: 20140415, end: 20140706
  2. SIMEPREVIR [Suspect]
     Active Substance: SIMEPREVIR
     Indication: HEPATITIS C
     Dosage: 150 MG, QD
     Route: 048
     Dates: start: 20140415, end: 20140706
  3. VALGANCICLOVIR. [Concomitant]
     Active Substance: VALGANCICLOVIR
     Dosage: 450 MG
     Route: 048
  4. URSODEOXYCHOLIC ACID [Concomitant]
     Active Substance: URSODIOL
     Dosage: 300 MG, 3 PER 1 DAY
     Route: 048
  5. PANTOPRAZOLE [Concomitant]
     Active Substance: PANTOPRAZOLE
     Dosage: 40 MG, QD
     Route: 048
     Dates: start: 20130624
  6. OXYBUTYNIN. [Concomitant]
     Active Substance: OXYBUTYNIN CHLORIDE
     Dosage: 5 MG, QD
     Route: 048
     Dates: start: 20131021
  7. TAMSULOSIN [Concomitant]
     Active Substance: TAMSULOSIN
     Dosage: 0.4 MG, QD
     Route: 048
  8. HYOSCYAMINE. [Concomitant]
     Active Substance: HYOSCYAMINE
     Dosage: 0.125 MG
     Route: 048
  9. AMBRISENTAN [Suspect]
     Active Substance: AMBRISENTAN
     Indication: PRODUCT USED FOR UNKNOWN INDICATION
     Dosage: UNK
     Route: 065
  10. DEFERASIROX. [Suspect]
     Active Substance: DEFERASIROX
     Indication: MYELODYSPLASTIC SYNDROME
     Dosage: UNK
     Route: 065
  11. LEVOTHYROXINE. [Concomitant]
     Active Substance: LEVOTHYROXINE
     Dosage: 175 UG, QD
     Route: 048
     Dates: start: 20140327
  12. CICLOSPORIN [Concomitant]
     Active Substance: CYCLOSPORINE
     Dosage: 25 MG, 2 PER 1 DAY
     Route: 048
  13. MAGNESIUM OXIDE. [Concomitant]
     Active Substance: MAGNESIUM OXIDE
     Dosage: 800 MG, 2 PER 1 DAY
     Route: 048
  14. RIFAXIMIN. [Concomitant]
     Active Substance: RIFAXIMIN
     Dosage: 550 MG, 2 PER 1 DAY
     Route: 048

REACTIONS (32)
  - Decreased appetite [Unknown]
  - Left atrial dilatation [Unknown]
  - Encephalopathy [Fatal]
  - Renal tubular necrosis [Unknown]
  - Hepatorenal syndrome [Unknown]
  - Weaning failure [Unknown]
  - Dizziness [Unknown]
  - Glomerulonephritis membranous [Unknown]
  - Pneumonia aspiration [Unknown]
  - Renal haemorrhage [Unknown]
  - Pulmonary oedema [Unknown]
  - Right ventricular systolic pressure increased [Unknown]
  - Hepatic steatosis [Unknown]
  - Proteinuria [Unknown]
  - Hypoxia [Unknown]
  - Asthenia [Unknown]
  - Acute respiratory distress syndrome [Fatal]
  - Renal failure [Unknown]
  - Nephrosclerosis [Unknown]
  - Sepsis [Unknown]
  - Fall [Unknown]
  - Mental disorder [Unknown]
  - Pleural effusion [Unknown]
  - Acute kidney injury [Unknown]
  - Aspiration [Unknown]
  - Asterixis [Unknown]
  - Dilatation intrahepatic duct acquired [Unknown]
  - Pulseless electrical activity [Unknown]
  - Mucosal dryness [Unknown]
  - Abdominal distension [Unknown]
  - Balance disorder [Unknown]
  - Renal haematoma [Unknown]
